FAERS Safety Report 8605237-3 (Version None)
Quarter: 2012Q3

REPORT INFORMATION
  Report Type: 
  Country: None (occurrence: None)
  Receive Date: 20120820
  Receipt Date: 20120809
  Transmission Date: 20120928
  Serious: Yes (Other)
  Sender: FDA-Public Use
  Company Number: US-US-EMD SERONO, INC.-7049399

PATIENT
  Sex: Female
  Weight: 90 kg

DRUGS (3)
  1. REBIF [Suspect]
     Route: 058
  2. MACROBID [Suspect]
     Indication: URINARY TRACT INFECTION
     Dates: start: 20110101
  3. REBIF [Suspect]
     Indication: MULTIPLE SCLEROSIS
     Route: 058
     Dates: start: 20041004, end: 20110101

REACTIONS (4)
  - MULTIPLE SCLEROSIS RELAPSE [None]
  - LOWER LIMB FRACTURE [None]
  - DRUG-INDUCED LIVER INJURY [None]
  - URINARY TRACT INFECTION [None]
